FAERS Safety Report 4881243-X (Version None)
Quarter: 2005Q4

REPORT INFORMATION
  Report Type: 
  Country: None (occurrence: None)
  Receive Date: 20051201
  Receipt Date: 20050718
  Transmission Date: 20060501
  Serious: No
  Sender: FDA-Public Use
  Company Number: 2005PV000625

PATIENT
  Age: 62 Year
  Sex: Male
  Weight: 113.3993 kg

DRUGS (10)
  1. BYETTA [Suspect]
     Indication: DIABETES MELLITUS NON-INSULIN-DEPENDENT
     Dosage: 5 MCG; BID; SC
     Route: 058
     Dates: start: 20050713
  2. LIPITOR [Concomitant]
  3. ALEVE [Concomitant]
  4. AMARYL [Concomitant]
  5. GLUCOPHAGE [Concomitant]
  6. QUININE SULFATE [Concomitant]
  7. CELEBREX [Concomitant]
  8. VITAMINS [Concomitant]
  9. CALCIUM GLUCONATE [Concomitant]
  10. GLUCOSAMINE [Concomitant]

REACTIONS (3)
  - MUSCLE SPASMS [None]
  - MUSCULAR WEAKNESS [None]
  - NEUROPATHY [None]
